FAERS Safety Report 8573116-6 (Version None)
Quarter: 2012Q3

REPORT INFORMATION
  Report Type: 
  Country: None (occurrence: None)
  Receive Date: 20120806
  Receipt Date: 20120727
  Transmission Date: 20120928
  Serious: Yes (Other)
  Sender: FDA-Public Use
  Company Number: US-ACTELION-A-US2012-69419

PATIENT
  Age: 63 Year
  Sex: Female

DRUGS (2)
  1. TRACLEER [Suspect]
     Indication: PULMONARY ARTERIAL HYPERTENSION
     Dosage: UNK
     Route: 048
  2. CALCIUM CHANNEL BLOCKERS [Concomitant]

REACTIONS (4)
  - WOUND [None]
  - FALL [None]
  - CONTUSION [None]
  - WOUND CLOSURE [None]
